FAERS Safety Report 8823997 (Version 1)
Quarter: 2012Q4

REPORT INFORMATION
  Report Type: 
  Country: US (occurrence: US)
  Receive Date: 20121003
  Receipt Date: 20121003
  Transmission Date: 20130627
  Serious: Yes (Hospitalization)
  Sender: FDA-Public Use
  Company Number: US-009507513-1210USA000831

PATIENT
  Age: 38 Year
  Sex: Male

DRUGS (6)
  1. JANUVIA [Suspect]
     Dosage: 100 mg, qd
     Route: 048
  2. HYDROCHLOROTHIAZIDE [Concomitant]
  3. LAMICTAL [Concomitant]
  4. LANTUS [Concomitant]
  5. GEODON [Concomitant]
  6. CYMBALTA [Concomitant]
     Dosage: UNK

REACTIONS (2)
  - Diabetic ketoacidosis [Unknown]
  - Pancreatitis acute [Unknown]
